FAERS Safety Report 5307642-X (Version None)
Quarter: 2007Q2

REPORT INFORMATION
  Report Type: 
  Country: None (occurrence: None)
  Receive Date: 20070418
  Receipt Date: 20070406
  Transmission Date: 20071010
  Serious: Yes (Hospitalization)
  Sender: FDA-Public Use
  Company Number: 02100-JPN-07-0187

PATIENT
  Age: 67 Year
  Sex: Female

DRUGS (4)
  1. CILOSTAZOL [Suspect]
     Indication: DIABETIC VASCULAR DISORDER
     Dosage: 200 MG, ORAL
     Route: 048
     Dates: start: 20050819
  2. IRBESARTAN [Concomitant]
  3. REGULAR INSULIN [Concomitant]
  4. GLIMEPIRIDE [Concomitant]

REACTIONS (1)
  - COLON CANCER [None]
